FAERS Safety Report 21622109 (Version 2)
Quarter: 2022Q4

REPORT INFORMATION
  Report Type: Report from Study
  Country: CO (occurrence: CO)
  Receive Date: 20221121
  Receipt Date: 20221219
  Transmission Date: 20230113
  Serious: Yes (Hospitalization, Other)
  Sender: FDA-Public Use
  Company Number: CO-002147023-NVSC2022CO036295

PATIENT
  Sex: Female

DRUGS (2)
  1. KISQALI [Suspect]
     Active Substance: RIBOCICLIB
     Indication: Breast cancer metastatic
     Dosage: 600 MG, QD
     Route: 048
     Dates: start: 20211117
  2. KISQALI [Suspect]
     Active Substance: RIBOCICLIB
     Dosage: 400 MG, QD
     Route: 048

REACTIONS (13)
  - Arthralgia [Unknown]
  - Pain in extremity [Unknown]
  - Spinal pain [Unknown]
  - Metastasis [Unknown]
  - Metastases to meninges [Unknown]
  - White blood cell count decreased [Unknown]
  - Swelling face [Unknown]
  - Hyperglycaemia [Unknown]
  - Contusion [Unknown]
  - Hypoaesthesia [Unknown]
  - Oral mucosal blistering [Unknown]
  - Pruritus [Unknown]
  - Dry skin [Unknown]
